FAERS Safety Report 23388333 (Version 2)
Quarter: 2024Q1

REPORT INFORMATION
  Report Type: Spontaneous
  Country: AU (occurrence: AU)
  Receive Date: 20240110
  Receipt Date: 20240123
  Transmission Date: 20240410
  Serious: Yes (Hospitalization, Other)
  Sender: FDA-Public Use
  Company Number: AU-BAXTER-2024BAX010150

PATIENT
  Age: 66 Year
  Sex: Female
  Weight: 51.4 kg

DRUGS (27)
  1. IFOSFAMIDE [Suspect]
     Active Substance: IFOSFAMIDE
     Indication: Diffuse large B-cell lymphoma stage IV
     Dosage: 5 MILLIGRAM/SQ. METER, CYCLE 1, INFUSION
     Route: 042
     Dates: start: 20231210, end: 20231210
  2. RITUXIMAB [Suspect]
     Active Substance: RITUXIMAB
     Indication: Diffuse large B-cell lymphoma stage IV
     Dosage: 375 MILLIGRAM/SQ. METER, CYCLE 1 ARM 10
     Route: 042
     Dates: start: 20231209
  3. CARBOPLATIN [Suspect]
     Active Substance: CARBOPLATIN
     Indication: Diffuse large B-cell lymphoma stage IV
     Dosage: 800 AUC, CYCLE 1
     Route: 042
     Dates: start: 20231210, end: 20231210
  4. ETOPOSIDE [Suspect]
     Active Substance: ETOPOSIDE
     Indication: Diffuse large B-cell lymphoma stage IV
     Dosage: 100 MG/M2, CYCLE 1 (D1-D3)
     Route: 042
     Dates: start: 20231209, end: 20231211
  5. EPCORITAMAB [Suspect]
     Active Substance: EPCORITAMAB
     Indication: Diffuse large B-cell lymphoma stage IV
     Dosage: 0.16 MG, CYCLE 1 D1, PRIMING DOSE
     Route: 058
     Dates: start: 20231211, end: 20231211
  6. EPCORITAMAB [Suspect]
     Active Substance: EPCORITAMAB
     Dosage: 48 MG, CYCLE 1 D 15, LATEST DOSE ADMINISTERED (FULL DOSE), ONGOING
     Route: 058
     Dates: start: 20231227
  7. EPCORITAMAB [Suspect]
     Active Substance: EPCORITAMAB
     Dosage: 0.8 MG, CYCLE 1 D8, INTERMEDIATE DOSE
     Route: 058
     Dates: start: 20231219, end: 20231219
  8. LORATADINE [Concomitant]
     Active Substance: LORATADINE
     Dosage: 10 MG
     Route: 048
     Dates: start: 20231209, end: 20231209
  9. LORATADINE [Concomitant]
     Active Substance: LORATADINE
     Dosage: 10 MG
     Route: 048
     Dates: start: 20231227
  10. ACETAMINOPHEN [Concomitant]
     Active Substance: ACETAMINOPHEN
     Dosage: 1000 MG
     Route: 048
     Dates: start: 20231209, end: 20231209
  11. ACETAMINOPHEN [Concomitant]
     Active Substance: ACETAMINOPHEN
     Dosage: 1000 MG
     Route: 048
     Dates: start: 20231227
  12. PREDNISOLONE [Concomitant]
     Active Substance: PREDNISOLONE
     Dosage: 100 MG
     Route: 048
     Dates: start: 20231211, end: 20231214
  13. PREDNISOLONE [Concomitant]
     Active Substance: PREDNISOLONE
     Dosage: 100 MG
     Route: 048
     Dates: start: 20231228, end: 20231231
  14. PREDNISOLONE [Concomitant]
     Active Substance: PREDNISOLONE
     Dosage: UNK
     Route: 065
     Dates: start: 20231203, end: 20231208
  15. DEXAMETHASONE [Concomitant]
     Active Substance: DEXAMETHASONE
     Dosage: 8 MG
     Route: 048
     Dates: start: 20231213, end: 20231222
  16. ALLOPURINOL [Concomitant]
     Active Substance: ALLOPURINOL
     Dosage: UNK, ONGOING
     Route: 065
     Dates: start: 20231209
  17. DOCUSATE [Concomitant]
     Active Substance: DOCUSATE
     Dosage: UNK, ONGOING
     Route: 065
     Dates: start: 20231214
  18. SULFAMETHOXAZOLE\TRIMETHOPRIM [Concomitant]
     Active Substance: SULFAMETHOXAZOLE\TRIMETHOPRIM
     Dosage: UNK, ONGOING
     Route: 065
     Dates: start: 20231209
  19. DICLOFENAC [Concomitant]
     Active Substance: DICLOFENAC
     Dosage: UNK, ONGOING
     Route: 065
     Dates: start: 20231208
  20. BISACODYL [Concomitant]
     Active Substance: BISACODYL
     Dosage: UNK, ONGOING
     Route: 065
     Dates: start: 20231209
  21. ELECTROLYTES NOS\POLYETHYLENE GLYCOL 3350 [Concomitant]
     Active Substance: ELECTROLYTES NOS\POLYETHYLENE GLYCOL 3350
     Dosage: UNK, ONGOING
     Route: 065
     Dates: start: 20231210
  22. TAPENTADOL [Concomitant]
     Active Substance: TAPENTADOL
     Dosage: UNK, ONGOING
     Route: 065
     Dates: start: 20231208
  23. PANTOPRAZOLE [Concomitant]
     Active Substance: PANTOPRAZOLE
     Dosage: UNK, ONGOING
     Route: 065
     Dates: start: 20231208
  24. ENOXAPARIN [Concomitant]
     Active Substance: ENOXAPARIN
     Dosage: UNK, ONGOING
     Route: 065
     Dates: start: 20231208
  25. PREGABALIN [Concomitant]
     Active Substance: PREGABALIN
     Dosage: UNK, ONGOING
     Route: 065
     Dates: start: 20231209
  26. VALACYCLOVIR HYDROCHLORIDE [Concomitant]
     Active Substance: VALACYCLOVIR HYDROCHLORIDE
     Dosage: UNK, ONGOING
     Route: 065
     Dates: start: 20231209
  27. FILGRASTIM [Concomitant]
     Active Substance: FILGRASTIM
     Dosage: UNK
     Route: 065
     Dates: start: 20231214, end: 20231221

REACTIONS (3)
  - Cytokine release syndrome [Recovered/Resolved]
  - Pyrexia [Recovered/Resolved]
  - Chills [Recovered/Resolved]

NARRATIVE: CASE EVENT DATE: 20231228
